FAERS Safety Report 13051306 (Version 1)
Quarter: 2016Q4

REPORT INFORMATION
  Report Type: Spontaneous
  Country: JP (occurrence: JP)
  Receive Date: 20161221
  Receipt Date: 20161221
  Transmission Date: 20170207
  Serious: Yes (Other)
  Sender: FDA-Public Use
  Company Number: JP-MYLANLABS-2016M1056111

PATIENT

DRUGS (5)
  1. TRASTUZUMAB [Suspect]
     Active Substance: TRASTUZUMAB
     Indication: BREAST CANCER RECURRENT
     Dosage: 4 MG/KG FOR 90 MINUTE INFUSION AS LOADING DOSE; FOLLOWED BY 30 MINUTES AT 2 MG/KG
     Route: 050
  2. TEGAFUR [Concomitant]
     Active Substance: TEGAFUR
     Indication: BREAST CANCER RECURRENT
     Route: 065
  3. PACLITAXEL. [Suspect]
     Active Substance: PACLITAXEL
     Indication: BREAST CANCER RECURRENT
     Route: 065
  4. TAMOXIFEN [Concomitant]
     Active Substance: TAMOXIFEN
     Indication: BREAST CANCER RECURRENT
     Route: 065
  5. TRASTUZUMAB [Suspect]
     Active Substance: TRASTUZUMAB
     Dosage: 2 MG/KG, 30 MINUTES INFUSION
     Route: 050

REACTIONS (7)
  - Leukopenia [Unknown]
  - Phlebitis [Unknown]
  - Decreased appetite [Unknown]
  - Neutropenia [Unknown]
  - Dysgeusia [Unknown]
  - Mucosal inflammation [Unknown]
  - Alopecia [Unknown]
